FAERS Safety Report 10046126 (Version 1)
Quarter: 2014Q1

REPORT INFORMATION
  Report Type: Spontaneous
  Country: US (occurrence: US)
  Receive Date: 20140331
  Receipt Date: 20140331
  Transmission Date: 20141002
  Serious: No
  Sender: FDA-Public Use
  Company Number: US-BIOGENIDEC-2014BI026639

PATIENT
  Sex: Female

DRUGS (9)
  1. AVONEX [Suspect]
     Indication: MULTIPLE SCLEROSIS
     Route: 030
     Dates: start: 19980201, end: 201203
  2. HYDROCHLOROTHIAZIDE [Concomitant]
  3. NEXIUM [Concomitant]
  4. SYMBICORT [Concomitant]
  5. PROAIR HFA [Concomitant]
  6. CYMBALTA [Concomitant]
  7. SINGULAIR [Concomitant]
  8. MELATONIN [Concomitant]
  9. MIRAPEX [Concomitant]

REACTIONS (9)
  - Gait disturbance [Not Recovered/Not Resolved]
  - Vertigo [Not Recovered/Not Resolved]
  - Retching [Recovered/Resolved]
  - Aphagia [Unknown]
  - Dry mouth [Unknown]
  - General symptom [Recovered/Resolved]
  - Feeling abnormal [Unknown]
  - Fatigue [Recovered/Resolved]
  - Headache [Unknown]
